FAERS Safety Report 20100216 (Version 3)
Quarter: 2021Q4

REPORT INFORMATION
  Report Type: Spontaneous
  Country: IT (occurrence: IT)
  Receive Date: 20211123
  Receipt Date: 20211203
  Transmission Date: 20220303
  Serious: Yes (Other)
  Sender: FDA-Public Use
  Company Number: IT-CELLTRION INC.-2021IT015560

PATIENT

DRUGS (2)
  1. RITUXIMAB [Suspect]
     Active Substance: RITUXIMAB
     Indication: Multiple sclerosis
     Dosage: UNK
     Route: 065
     Dates: start: 201803, end: 201901
  2. OCRELIZUMAB [Concomitant]
     Active Substance: OCRELIZUMAB
     Indication: Multiple sclerosis
     Dosage: UNK
     Route: 065
     Dates: start: 201901

REACTIONS (7)
  - Multiple sclerosis [Unknown]
  - Rebound effect [Unknown]
  - Urinary retention [Unknown]
  - Gait disturbance [Unknown]
  - Hypoaesthesia [Unknown]
  - Off label use [Unknown]
  - Product use in unapproved indication [Unknown]
